FAERS Safety Report 9161126 (Version 1)
Quarter: 2013Q1

REPORT INFORMATION
  Report Type: Spontaneous
  Country: US (occurrence: US)
  Receive Date: 20130313
  Receipt Date: 20130313
  Transmission Date: 20140127
  Serious: Yes (Other)
  Sender: FDA-Public Use
  Company Number: PHHY2013US023735

PATIENT
  Age: 84 Year
  Sex: Female

DRUGS (2)
  1. ASCRIPTIN [Suspect]
     Indication: PAIN
     Dosage: 2-4 PILLS DAILY
     Route: 048
     Dates: start: 1975
  2. ATENOLOL [Concomitant]
     Indication: HYPERTENSION

REACTIONS (5)
  - Sjogren^s syndrome [Not Recovered/Not Resolved]
  - Arthritis [Not Recovered/Not Resolved]
  - Incorrect drug administration duration [Not Recovered/Not Resolved]
  - Dry eye [Not Recovered/Not Resolved]
  - Dry mouth [Not Recovered/Not Resolved]
